FAERS Safety Report 4690988-6 (Version None)
Quarter: 2005Q2

REPORT INFORMATION
  Report Type: 
  Country: None (occurrence: None)
  Receive Date: 20050610
  Receipt Date: 20050603
  Transmission Date: 20051028
  Serious: Yes (Hospitalization)
  Sender: FDA-Public Use
  Company Number: 2005084456

PATIENT
  Age: 73 Year
  Sex: Female

DRUGS (5)
  1. TAHOR            (ATORVASTATIN) [Suspect]
     Indication: MYOCARDIAL INFARCTION
     Dosage: 80 MG
     Dates: start: 20050101, end: 20050510
  2. CLOPIDOGREL BISULFATE [Concomitant]
  3. BISOPROLOL        (BISOPROLOL) [Concomitant]
  4. INSULIN [Concomitant]
  5. PAROXETINE HCL [Concomitant]

REACTIONS (6)
  - CARDIAC FAILURE [None]
  - CONDITION AGGRAVATED [None]
  - CYTOLYTIC HEPATITIS [None]
  - DIABETES MELLITUS [None]
  - HEPATITIS CHOLESTATIC [None]
  - PROTHROMBIN TIME PROLONGED [None]
